FAERS Safety Report 10979783 (Version 2)
Quarter: 2015Q2

REPORT INFORMATION
  Report Type: Report from Study
  Country: US (occurrence: US)
  Receive Date: 20150402
  Receipt Date: 20150413
  Transmission Date: 20150821
  Serious: Yes (Hospitalization)
  Sender: FDA-Public Use
  Company Number: US-ACTELION-A-NJ2015-114961

PATIENT
  Age: 49 Year
  Sex: Female

DRUGS (3)
  1. TRACLEER [Suspect]
     Active Substance: BOSENTAN\BOSENTAN MONOHYDRATE
     Indication: PULMONARY ARTERIAL HYPERTENSION
     Dosage: UNK UNK, PER MIN
     Route: 048
  2. RIOCIGUAT [Concomitant]
     Active Substance: RIOCIGUAT
  3. VELETRI [Suspect]
     Active Substance: EPOPROSTENOL
     Indication: PULMONARY ARTERIAL HYPERTENSION
     Dosage: 60 NG/KG, PER MIN
     Route: 042
     Dates: start: 20110504

REACTIONS (10)
  - Pulse pressure increased [Unknown]
  - Rales [Unknown]
  - Dyspnoea [Unknown]
  - Pain in jaw [Unknown]
  - Pyrexia [Unknown]
  - Clostridium difficile infection [Unknown]
  - Hypotension [Unknown]
  - Pain in extremity [Unknown]
  - Fatigue [Unknown]
  - Pneumonia [Unknown]
